FAERS Safety Report 11301810 (Version 1)
Quarter: 2015Q3

REPORT INFORMATION
  Report Type: Spontaneous
  Country: US (occurrence: US)
  Receive Date: 20150722
  Receipt Date: 20150722
  Transmission Date: 20151125
  Serious: No
  Sender: FDA-Public Use
  Company Number: US-ELI_LILLY_AND_COMPANY-US200807004481

PATIENT
  Sex: Female

DRUGS (2)
  1. DOSTINEX [Concomitant]
     Active Substance: CABERGOLINE
     Indication: TUMOUR INVASION
  2. HUMATROPE [Suspect]
     Active Substance: SOMATROPIN
     Indication: GROWTH HORMONE DEFICIENCY
     Dosage: 0.1 MG, UNKNOWN
     Dates: start: 20080717, end: 20080719

REACTIONS (3)
  - Nausea [Unknown]
  - Abdominal distension [Unknown]
  - Burning sensation [Unknown]
